FAERS Safety Report 5266471-6 (Version None)
Quarter: 2007Q1

REPORT INFORMATION
  Report Type: 
  Country: None (occurrence: None)
  Receive Date: 20070315
  Receipt Date: 20070305
  Transmission Date: 20070707
  Serious: Yes (Hospitalization)
  Sender: FDA-Public Use
  Company Number: GB-GILEAD-2007-0011253

PATIENT
  Age: 30 Year
  Sex: Male

DRUGS (2)
  1. TRUVADA [Suspect]
     Dates: start: 20070119
  2. EFAVIRENZ [Suspect]

REACTIONS (3)
  - MALAISE [None]
  - NAUSEA [None]
  - OVERDOSE [None]
